FAERS Safety Report 6102079-8 (Version None)
Quarter: 2009Q1

REPORT INFORMATION
  Report Type: 
  Country: None (occurrence: None)
  Receive Date: 20090303
  Receipt Date: 20090303
  Transmission Date: 20090719
  Serious: Yes (Hospitalization)
  Sender: FDA-Public Use
  Company Number: None

PATIENT
  Sex: Female
  Weight: 30.2 kg

DRUGS (2)
  1. NUTROPIN AQ [Suspect]
     Indication: BODY HEIGHT BELOW NORMAL
     Dosage: 1.4 MG EACH EVENING SQ
     Route: 058
     Dates: start: 20071112
  2. NUTROPIN AQ [Suspect]
     Indication: OSTEOGENESIS IMPERFECTA
     Dosage: 1.4 MG EACH EVENING SQ
     Route: 058
     Dates: start: 20071112

REACTIONS (5)
  - FIGHT IN SCHOOL [None]
  - HOMICIDAL IDEATION [None]
  - PHYSICAL ABUSE [None]
  - SUICIDAL IDEATION [None]
  - VIOLENCE-RELATED SYMPTOM [None]
